FAERS Safety Report 10438280 (Version 4)
Quarter: 2015Q2

REPORT INFORMATION
  Report Type: Spontaneous
  Country: US (occurrence: US)
  Receive Date: 20140908
  Receipt Date: 20150504
  Transmission Date: 20150821
  Serious: Yes (Hospitalization, Other)
  Sender: FDA-Public Use
  Company Number: US-GLAXOSMITHKLINE-A1087258A

PATIENT
  Sex: Female

DRUGS (16)
  1. DIGOXIN. [Concomitant]
     Active Substance: DIGOXIN
  2. SALMETEROL XINAFOATE [Suspect]
     Active Substance: SALMETEROL XINAFOATE
     Indication: PRODUCT USED FOR UNKNOWN INDICATION
     Route: 065
  3. GABAPENTIN. [Concomitant]
     Active Substance: GABAPENTIN
  4. VALTREX [Suspect]
     Active Substance: VALACYCLOVIR HYDROCHLORIDE
     Indication: HERPES ZOSTER
     Dosage: 500 MG EVERY OTHER DAY
     Route: 048
     Dates: start: 1999
  5. SOTALOL. [Concomitant]
     Active Substance: SOTALOL
  6. REVATIO [Concomitant]
     Active Substance: SILDENAFIL CITRATE
  7. LORAZEPAM. [Concomitant]
     Active Substance: LORAZEPAM
  8. HYDROCODONE [Concomitant]
     Active Substance: HYDROCODONE
  9. ADVAIR HFA [Suspect]
     Active Substance: FLUTICASONE PROPIONATE\SALMETEROL XINAFOATE
     Indication: CHRONIC OBSTRUCTIVE PULMONARY DISEASE
     Dosage: 1 PUFF(S), BID
     Route: 055
  10. PRAVASTATIN [Concomitant]
     Active Substance: PRAVASTATIN\PRAVASTATIN SODIUM
  11. TEMAZEPAM. [Concomitant]
     Active Substance: TEMAZEPAM
  12. THEOPHYLLINE [Concomitant]
     Active Substance: THEOPHYLLINE ANHYDROUS
  13. ASPIRIN. [Concomitant]
     Active Substance: ASPIRIN
  14. FLOVENT [Suspect]
     Active Substance: FLUTICASONE PROPIONATE
     Indication: CHRONIC OBSTRUCTIVE PULMONARY DISEASE
     Route: 055
  15. LASIX [Concomitant]
     Active Substance: FUROSEMIDE
  16. SPIRIVA [Concomitant]
     Active Substance: TIOTROPIUM BROMIDE MONOHYDRATE

REACTIONS (20)
  - Hospitalisation [Unknown]
  - Myocardial infarction [Unknown]
  - Implantable defibrillator insertion [Unknown]
  - Cardiac disorder [Unknown]
  - Pulmonary arterial hypertension [Not Recovered/Not Resolved]
  - Dizziness [Unknown]
  - Cardiac failure congestive [Not Recovered/Not Resolved]
  - Emphysema [Unknown]
  - Herpes zoster [Unknown]
  - Coronary artery bypass [Unknown]
  - Multiple allergies [Unknown]
  - Arterial rupture [Unknown]
  - Catheterisation cardiac [Unknown]
  - Cardiomyopathy [Not Recovered/Not Resolved]
  - Off label use [Unknown]
  - Hypersensitivity [Unknown]
  - Rhinorrhoea [Unknown]
  - Arrhythmia [Unknown]
  - Chest discomfort [Unknown]
  - Laryngitis [Unknown]

NARRATIVE: CASE EVENT DATE: 1999
